FAERS Safety Report 8326842-8 (Version None)
Quarter: 2012Q2

REPORT INFORMATION
  Report Type: 
  Country: None (occurrence: None)
  Receive Date: 20120430
  Receipt Date: 20120416
  Transmission Date: 20120825
  Serious: Yes (Other)
  Sender: FDA-Public Use
  Company Number: 20120255

PATIENT
  Age: 44 Year
  Sex: Female

DRUGS (5)
  1. LOCAL ANAESTHETIC (UNSPECIFIED) [Suspect]
     Indication: PRODUCT USED FOR UNKNOWN INDICATION
     Dosage: UNKNOWN
  2. TETRACAINE 1:10 [Suspect]
     Indication: SKIN TEST
     Dosage: UNK INTRADERMAL
     Route: 023
  3. LIDOCAINE 1% INJ [Suspect]
     Indication: DENTAL CARE
     Dosage: UNK INJECTION NOS
  4. LIDOCAINE 1% INJ [Suspect]
     Indication: SKIN TEST
     Dosage: 0.5 ML INTRADERMAL
     Route: 023
  5. ARTICAINE [Suspect]
     Indication: SKIN TEST
     Dosage: 0.1 ML INTRADERMAL
     Route: 023

REACTIONS (6)
  - ANGIOEDEMA [None]
  - RASH PRURITIC [None]
  - SKIN TEST POSITIVE [None]
  - CROSS SENSITIVITY REACTION [None]
  - URTICARIA [None]
  - BLOOD IMMUNOGLOBULIN E INCREASED [None]
